FAERS Safety Report 14285111 (Version 2)
Quarter: 2018Q1

REPORT INFORMATION
  Report Type: Spontaneous
  Country: KR (occurrence: KR)
  Receive Date: 20171214
  Receipt Date: 20180117
  Transmission Date: 20180509
  Serious: Yes (Hospitalization, Other)
  Sender: FDA-Public Use
  Company Number: KR-VISTAPHARM, INC.-VER201712-001279

PATIENT
  Age: 62 Year
  Sex: Male

DRUGS (10)
  1. SULPIRIDE [Concomitant]
     Active Substance: SULPIRIDE
     Indication: PERSONALITY CHANGE
  2. CLONAZEPAM. [Concomitant]
     Active Substance: CLONAZEPAM
  3. PHENYTOIN. [Suspect]
     Active Substance: PHENYTOIN
     Indication: SEIZURE
  4. PHENYTOIN. [Suspect]
     Active Substance: PHENYTOIN
  5. SULPIRIDE [Concomitant]
     Active Substance: SULPIRIDE
     Indication: AGGRESSION
  6. LORAZEPAM. [Concomitant]
     Active Substance: LORAZEPAM
  7. PERPHENAZINE. [Concomitant]
     Active Substance: PERPHENAZINE
     Indication: AGGRESSION
  8. PERPHENAZINE. [Concomitant]
     Active Substance: PERPHENAZINE
     Indication: PERSONALITY CHANGE
  9. LORAZEPAM. [Concomitant]
     Active Substance: LORAZEPAM
  10. AMITRIPTYLINE [Concomitant]
     Active Substance: AMITRIPTYLINE

REACTIONS (1)
  - Neuroleptic malignant syndrome [Recovered/Resolved]
